FAERS Safety Report 7757229-4 (Version None)
Quarter: 2011Q3

REPORT INFORMATION
  Report Type: 
  Country: None (occurrence: None)
  Receive Date: 20110916
  Receipt Date: 20110906
  Transmission Date: 20111222
  Serious: Yes (Hospitalization)
  Sender: FDA-Public Use
  Company Number: US-BRISTOL-MYERS SQUIBB COMPANY-16032419

PATIENT
  Age: 56 Year
  Sex: Female

DRUGS (2)
  1. POTASSIUM CHLORIDE [Suspect]
     Dosage: 20MEQ EXTENDED RELEASE TABS
  2. LISINOPRIL [Suspect]
     Dosage: 10MG TABLET

REACTIONS (8)
  - HYPERKALAEMIA [None]
  - VENTRICULAR TACHYCARDIA [None]
  - SUICIDE ATTEMPT [None]
  - HYPOTENSION [None]
  - VENTRICULAR ARRHYTHMIA [None]
  - INTENTIONAL OVERDOSE [None]
  - CARDIAC ARREST [None]
  - BRADYCARDIA [None]
